FAERS Safety Report 16536534 (Version 2)
Quarter: 2019Q3

REPORT INFORMATION
  Report Type: Report from Study
  Country: AU (occurrence: AU)
  Receive Date: 20190706
  Receipt Date: 20190724
  Transmission Date: 20191004
  Serious: Yes (Other)
  Sender: FDA-Public Use
  Company Number: AU-BRISTOL-MYERS SQUIBB COMPANY-BMS-2019-064304

PATIENT
  Sex: Male

DRUGS (1)
  1. NIVOLUMAB [Suspect]
     Active Substance: NIVOLUMAB
     Indication: NON-SMALL CELL LUNG CANCER
     Dosage: 201 MILLIGRAM, Q2WK
     Route: 065

REACTIONS (4)
  - Glaucoma [Unknown]
  - Gastrooesophageal reflux disease [Unknown]
  - Pruritus [Unknown]
  - Chronic obstructive pulmonary disease [Unknown]
